FAERS Safety Report 4689546-9 (Version None)
Quarter: 2005Q2

REPORT INFORMATION
  Report Type: 
  Country: None (occurrence: None)
  Receive Date: 20050613
  Receipt Date: 20050613
  Transmission Date: 20051028
  Serious: Yes (Hospitalization)
  Sender: FDA-Public Use
  Company Number: None

PATIENT
  Age: 76 Year
  Sex: Male
  Weight: 85 kg

DRUGS (1)
  1. COUMADIN [Suspect]
     Indication: ATRIAL FIBRILLATION
     Dosage: 5 MG PO DAILY
     Route: 048
     Dates: start: 20050112, end: 20050116

REACTIONS (3)
  - HAEMATOCRIT DECREASED [None]
  - PAIN IN EXTREMITY [None]
  - RETROPERITONEAL HAEMORRHAGE [None]
